FAERS Safety Report 5777174-3 (Version None)
Quarter: 2008Q2

REPORT INFORMATION
  Report Type: 
  Country: None (occurrence: None)
  Receive Date: 20080618
  Receipt Date: 20080613
  Transmission Date: 20081010
  Serious: Yes (Hospitalization)
  Sender: FDA-Public Use
  Company Number: FI-AVENTIS-200812923GDDC

PATIENT
  Age: 9 Year
  Sex: Male

DRUGS (3)
  1. ARAVA [Suspect]
     Route: 048
     Dates: start: 20060915, end: 20080326
  2. ENBREL [Suspect]
     Route: 058
     Dates: start: 20070827, end: 20080326
  3. VIT D [Concomitant]
     Dosage: DOSE: UNK

REACTIONS (5)
  - CONVULSION [None]
  - HEADACHE [None]
  - HEMIPARESIS [None]
  - LOSS OF CONSCIOUSNESS [None]
  - OFF LABEL USE [None]
